FAERS Safety Report 20480060 (Version 1)
Quarter: 2022Q1

REPORT INFORMATION
  Report Type: Spontaneous
  Country: US (occurrence: None)
  Receive Date: 20220215
  Receipt Date: 20220215
  Transmission Date: 20220423
  Serious: Yes (Disabling)
  Sender: FDA-Public Use
  Company Number: None

PATIENT
  Age: 51 Year
  Sex: Female
  Weight: 52.2 kg

DRUGS (2)
  1. BOTOX COSMETIC [Suspect]
     Active Substance: ONABOTULINUMTOXINA
     Indication: Skin wrinkling
     Dosage: OTHER QUANTITY : 32 UNITS;?
     Route: 030
     Dates: start: 20220130, end: 20220130
  2. MULTIVITAMINS (C, D3, K2, B6 B12) [Concomitant]

REACTIONS (10)
  - Injection site bruising [None]
  - Ear pain [None]
  - Sinus pain [None]
  - Neuralgia [None]
  - Ear infection [None]
  - Feeling abnormal [None]
  - Teething [None]
  - Gingivitis [None]
  - Lip blister [None]
  - Herpes zoster [None]

NARRATIVE: CASE EVENT DATE: 20220130
